FAERS Safety Report 21424314 (Version 1)
Quarter: 2022Q4

REPORT INFORMATION
  Report Type: Spontaneous
  Country: US (occurrence: US)
  Receive Date: 20221007
  Receipt Date: 20221007
  Transmission Date: 20230113
  Serious: No
  Sender: FDA-Public Use
  Company Number: US-UPSHER-SMITH LABORATORIES, LLC-2022USL00593

PATIENT
  Sex: Female

DRUGS (2)
  1. ISOTRETINOIN [Suspect]
     Active Substance: ISOTRETINOIN
     Dosage: UNK, 2X/DAY
  2. ISOTRETINOIN [Suspect]
     Active Substance: ISOTRETINOIN
     Dosage: UNK, 1X/DAY
     Dates: end: 20220511

REACTIONS (4)
  - Sensitive skin [Unknown]
  - Lip pain [Unknown]
  - Chapped lips [Unknown]
  - Inappropriate schedule of product administration [Recovered/Resolved]
